FAERS Safety Report 16072647 (Version 2)
Quarter: 2019Q2

REPORT INFORMATION
  Report Type: Report from Study
  Country: CA (occurrence: CA)
  Receive Date: 20190314
  Receipt Date: 20190426
  Transmission Date: 20190711
  Serious: Yes (Death, Other)
  Sender: FDA-Public Use
  Company Number: CA-TAIHO ONCOLOGY  INC-EU-2019-00689

PATIENT
  Sex: Male
  Weight: 79.7 kg

DRUGS (5)
  1. COLACE [Concomitant]
     Active Substance: DOCUSATE SODIUM
     Dosage: NI
  2. LONSURF [Suspect]
     Active Substance: TIPIRACIL HYDROCHLORIDE\TRIFLURIDINE
     Indication: COLORECTAL CANCER METASTATIC
     Dosage: LONSURF DISCONTINUED AFTER CYCLE 1
     Route: 048
     Dates: start: 20181210, end: 2019
  3. DILAUDID [Concomitant]
     Active Substance: HYDROMORPHONE HYDROCHLORIDE
     Dosage: NI
  4. SENOKOT [Concomitant]
     Active Substance: SENNOSIDES
     Dosage: NI
  5. IMOVANE [Concomitant]
     Active Substance: ZOPICLONE
     Dosage: NI

REACTIONS (3)
  - Hepatic failure [Unknown]
  - Disease progression [Fatal]
  - Renal failure [Unknown]
